FAERS Safety Report 16234685 (Version 1)
Quarter: 2019Q2

REPORT INFORMATION
  Report Type: Report from Study
  Country: US (occurrence: US)
  Receive Date: 20190424
  Receipt Date: 20190424
  Transmission Date: 20190711
  Serious: Yes (Other)
  Sender: FDA-Public Use
  Company Number: US-JNJFOC-20190428766

PATIENT
  Sex: Female

DRUGS (1)
  1. TREMFYA [Suspect]
     Active Substance: GUSELKUMAB
     Indication: PSORIASIS
     Route: 058
     Dates: start: 20180417, end: 20190224

REACTIONS (4)
  - Loss of personal independence in daily activities [Unknown]
  - Decreased immune responsiveness [Recovered/Resolved]
  - Pain [Unknown]
  - Respiratory tract infection [Recovered/Resolved]
